FAERS Safety Report 6269390-1 (Version None)
Quarter: 2009Q3

REPORT INFORMATION
  Report Type: 
  Country: None (occurrence: None)
  Receive Date: 20090713
  Receipt Date: 20090625
  Transmission Date: 20100115
  Serious: Yes (Hospitalization)
  Sender: FDA-Public Use
  Company Number: 318515

PATIENT
  Age: 70 Year
  Sex: Female

DRUGS (15)
  1. VINCRISTINE [Suspect]
     Indication: LYMPHOMA
     Dosage: 1 MG,
     Dates: start: 20061027, end: 20061027
  2. DOXORUBICIN HCL [Suspect]
     Indication: LYMPHOMA
     Dosage: 80 MG, INTRAVENOUS
     Route: 042
     Dates: start: 20061027, end: 20061027
  3. CYCLOPHOSPHAMIDE [Suspect]
     Indication: LYMPHOMA
     Dosage: 1200 MG, INTRAVENOUS
     Route: 042
     Dates: start: 20061027, end: 20061027
  4. (RITUXIMAB) [Suspect]
     Indication: LYMPHOMA
     Dosage: 600 MG, INTRAVENOUS
     Route: 042
     Dates: start: 20061027, end: 20061027
  5. PREDNISONE TAB [Suspect]
     Indication: LYMPHOMA
  6. ALLOPURINOL [Concomitant]
  7. ATORVASTATIN CALCIUM [Concomitant]
  8. CANDESARTAN CILEXETIL [Concomitant]
  9. CLARITHROMYCIN [Concomitant]
  10. DILTIAZEM [Concomitant]
  11. FLUCONAZOLE [Concomitant]
  12. ISOSORBIDE DINITRATE [Concomitant]
  13. (MOVICOL /01053601/) [Concomitant]
  14. (OMEPRAZOLE) [Concomitant]
  15. PREDNISOLONE [Concomitant]

REACTIONS (2)
  - CENTRAL NERVOUS SYSTEM LYMPHOMA [None]
  - CEREBROVASCULAR ACCIDENT [None]
